FAERS Safety Report 6172788-3 (Version None)
Quarter: 2009Q2

REPORT INFORMATION
  Report Type: 
  Country: None (occurrence: None)
  Receive Date: 20090430
  Receipt Date: 20090427
  Transmission Date: 20091009
  Serious: Yes (Death, Other)
  Sender: FDA-Public Use
  Company Number: MX-BRISTOL-MYERS SQUIBB COMPANY-14566830

PATIENT
  Age: 35 Year
  Sex: Male

DRUGS (5)
  1. SPRYCEL [Suspect]
     Indication: CHRONIC MYELOID LEUKAEMIA
     Route: 048
     Dates: start: 20090215
  2. STEROIDS [Suspect]
     Indication: BLAST CELL CRISIS
  3. FUROSEMIDE [Concomitant]
  4. CALCIUM GLUCONATE [Concomitant]
  5. DEXAMETHASONE 4MG TAB [Concomitant]

REACTIONS (4)
  - CARDIAC FAILURE [None]
  - HYPERKALAEMIA [None]
  - RENAL FAILURE [None]
  - TUMOUR LYSIS SYNDROME [None]
